FAERS Safety Report 15407705 (Version 1)
Quarter: 2018Q3

REPORT INFORMATION
  Report Type: Spontaneous
  Country: US (occurrence: US)
  Receive Date: 20180920
  Receipt Date: 20180920
  Transmission Date: 20181010
  Serious: Yes (Other)
  Sender: FDA-Public Use
  Company Number: US-JNJFOC-20180914982

PATIENT
  Age: 59 Year
  Sex: Female

DRUGS (1)
  1. HALDOL [Suspect]
     Active Substance: HALOPERIDOL
     Indication: PRODUCT USED FOR UNKNOWN INDICATION
     Route: 065

REACTIONS (7)
  - Renal failure [Unknown]
  - Blood pressure increased [Unknown]
  - Blunted affect [Unknown]
  - Musculoskeletal stiffness [Unknown]
  - Pyrexia [Unknown]
  - Heart rate increased [Unknown]
  - Tremor [Unknown]
